FAERS Safety Report 6181164-9 (Version None)
Quarter: 2009Q2

REPORT INFORMATION
  Report Type: 
  Country: None (occurrence: None)
  Receive Date: 20090504
  Receipt Date: 20090504
  Transmission Date: 20091009
  Serious: Yes (Other)
  Sender: FDA-Public Use
  Company Number: None

PATIENT
  Sex: Female
  Weight: 107.0489 kg

DRUGS (2)
  1. SINGULAIR [Suspect]
     Indication: ASTHMA
     Dosage: 1 PILL 1 TIMES A DAY PO
     Route: 048
     Dates: start: 20060715, end: 20090501
  2. SINGULAIR [Suspect]
     Indication: SINUS DISORDER
     Dosage: 1 PILL 1 TIMES A DAY PO
     Route: 048
     Dates: start: 20060715, end: 20090501

REACTIONS (2)
  - DEPRESSION [None]
  - SUICIDAL IDEATION [None]
